FAERS Safety Report 6398842-9 (Version None)
Quarter: 2009Q4

REPORT INFORMATION
  Report Type: 
  Country: None (occurrence: None)
  Receive Date: 20091013
  Receipt Date: 20090929
  Transmission Date: 20100525
  Serious: Yes (Hospitalization)
  Sender: FDA-Public Use
  Company Number: GB-MYLANLABS-2009S1017096

PATIENT
  Sex: Female

DRUGS (4)
  1. QUETIAPINE [Suspect]
     Indication: OVERDOSE
  2. DIAZEPAM [Suspect]
     Indication: OVERDOSE
  3. FERROUS FUMARATE [Suspect]
     Indication: OVERDOSE
  4. REMEDEINE                          /01204101/ [Suspect]
     Indication: OVERDOSE
     Dosage: NON-TOXIC DOSE

REACTIONS (3)
  - COMA [None]
  - ELECTROCARDIOGRAM QT PROLONGED [None]
  - OVERDOSE [None]
